FAERS Safety Report 13681305 (Version 2)
Quarter: 2017Q3

REPORT INFORMATION
  Report Type: Spontaneous
  Country: US (occurrence: US)
  Receive Date: 20170623
  Receipt Date: 20170719
  Transmission Date: 20171127
  Serious: No
  Sender: FDA-Public Use
  Company Number: US-PFIZER INC-2017272133

PATIENT
  Age: 55 Year
  Sex: Female

DRUGS (1)
  1. XELJANZ XR [Suspect]
     Active Substance: TOFACITINIB CITRATE
     Indication: RHEUMATOID ARTHRITIS
     Dosage: 11 MG, ONCE DAILY
     Route: 048
     Dates: start: 201607

REACTIONS (6)
  - Bronchitis [Not Recovered/Not Resolved]
  - Night sweats [Unknown]
  - Fatigue [Unknown]
  - Cough [Unknown]
  - Onychomycosis [Unknown]
  - Onychomadesis [Unknown]
